FAERS Safety Report 5342228-2 (Version None)
Quarter: 2007Q2

REPORT INFORMATION
  Report Type: 
  Country: None (occurrence: None)
  Receive Date: 20070601
  Receipt Date: 20070525
  Transmission Date: 20071010
  Serious: Yes (Other)
  Sender: FDA-Public Use
  Company Number: B0473258A

PATIENT
  Sex: Female

DRUGS (3)
  1. NIQUITIN CQ CLEAR 21MG [Suspect]
     Route: 062
     Dates: start: 20070523
  2. VENTOLIN [Concomitant]
     Indication: ASTHMA
     Route: 065
  3. QVAR 40 [Concomitant]
     Indication: ASTHMA
     Route: 055

REACTIONS (6)
  - APPLICATION SITE REACTION [None]
  - ASTHMA [None]
  - DIZZINESS [None]
  - DYSPNOEA [None]
  - MYALGIA [None]
  - NAUSEA [None]
